FAERS Safety Report 7678193-2 (Version None)
Quarter: 2011Q3

REPORT INFORMATION
  Report Type: 
  Country: None (occurrence: None)
  Receive Date: 20110811
  Receipt Date: 20080814
  Transmission Date: 20111222
  Serious: Yes (Death)
  Sender: FDA-Public Use
  Company Number: US-BAYER-200827761NA

PATIENT
  Sex: Female
  Weight: 92.971 kg

DRUGS (33)
  1. MAGNEVIST [Suspect]
     Indication: CATHETER PLACEMENT
     Dosage: 35 ML, ONCE
     Dates: start: 20020312, end: 20020312
  2. PROHANCE [Suspect]
     Indication: ANGIOGRAM
  3. BACTROBAN [Concomitant]
  4. LACTINOL [Concomitant]
  5. TRIAMCINOLONE ACETONIDE [Concomitant]
  6. LEVOTHYROXINE SODIUM [Concomitant]
  7. SIMVASTATIN [Concomitant]
  8. MAGNEVIST [Suspect]
     Indication: VENOGRAM
     Dates: start: 20020301, end: 20020301
  9. PROHANCE [Suspect]
     Indication: NUCLEAR MAGNETIC RESONANCE IMAGING
     Dates: start: 20040301, end: 20040301
  10. HYDROCODONE [Concomitant]
  11. NEPHROCAPS [Concomitant]
  12. SEVELAMER [Concomitant]
  13. SENSIPAR [Concomitant]
  14. CLOPIDOGREL BISULFATE [Concomitant]
  15. RENAGEL [Concomitant]
  16. EPO [Concomitant]
  17. VITAMIN D [Concomitant]
  18. PREDNISONE [Concomitant]
  19. MAGNEVIST [Suspect]
     Dates: start: 20060322, end: 20060322
  20. BENZACLIN [Concomitant]
  21. HUMULIN 70/30 [Concomitant]
  22. DIAZEPAM [Concomitant]
  23. PROTONIX [Concomitant]
  24. RISPERIDONE [Concomitant]
  25. MAGNEVIST [Suspect]
     Indication: NUCLEAR MAGNETIC RESONANCE IMAGING
     Dates: start: 20060301, end: 20060301
  26. MAGNEVIST [Suspect]
     Dosage: 15 ML, ONCE
     Dates: start: 20060320, end: 20060320
  27. FERROUS SULFATE TAB [Concomitant]
  28. WARFARIN [Concomitant]
  29. PROHANCE [Suspect]
     Indication: NUCLEAR MAGNETIC RESONANCE IMAGING BRAIN
     Dosage: 20 ML, ONCE
     Dates: start: 20040312, end: 20040312
  30. AMIODARONE HCL [Concomitant]
  31. MAGNEVIST [Suspect]
     Dates: start: 20060301, end: 20060301
  32. MIDODRINE HYDROCHLORIDE [Concomitant]
  33. CITALOPRAM HYDROBROMIDE [Concomitant]

REACTIONS (9)
  - PAIN [None]
  - ANXIETY [None]
  - MUSCLE ATROPHY [None]
  - JOINT RANGE OF MOTION DECREASED [None]
  - SKIN INDURATION [None]
  - ANHEDONIA [None]
  - JOINT STIFFNESS [None]
  - NEPHROGENIC SYSTEMIC FIBROSIS [None]
  - INJURY [None]
